FAERS Safety Report 17084547 (Version 1)
Quarter: 2019Q4

REPORT INFORMATION
  Report Type: Report from Study
  Country: US (occurrence: US)
  Receive Date: 20191127
  Receipt Date: 20191127
  Transmission Date: 20200122
  Serious: No
  Sender: FDA-Public Use
  Company Number: NVSC2019US049918

PATIENT
  Age: 64 Year
  Sex: Male

DRUGS (1)
  1. GILENYA [Suspect]
     Active Substance: FINGOLIMOD HYDROCHLORIDE
     Indication: MULTIPLE SCLEROSIS
     Dosage: 0.5 MG, QD
     Route: 048
     Dates: start: 20190909

REACTIONS (3)
  - Rash [Unknown]
  - Abdominal pain [Unknown]
  - Insomnia [Unknown]

NARRATIVE: CASE EVENT DATE: 20191015
